FAERS Safety Report 6754334-6 (Version None)
Quarter: 2010Q2

REPORT INFORMATION
  Report Type: 
  Country: None (occurrence: None)
  Receive Date: 20100603
  Receipt Date: 20100525
  Transmission Date: 20101027
  Serious: Yes (Other)
  Sender: FDA-Public Use
  Company Number: JP-BRISTOL-MYERS SQUIBB COMPANY-14890248

PATIENT
  Sex: Female

DRUGS (1)
  1. ABILIFY [Suspect]
     Indication: SCHIZOPHRENIA
     Dosage: INTERRUPTED ON 22MAY10
     Route: 048

REACTIONS (3)
  - CAESAREAN SECTION [None]
  - LIVE BIRTH [None]
  - PREGNANCY [None]
